FAERS Safety Report 4821161-6 (Version None)
Quarter: 2005Q4

REPORT INFORMATION
  Report Type: 
  Country: None (occurrence: None)
  Receive Date: 20051103
  Receipt Date: 20051027
  Transmission Date: 20060501
  Serious: Yes (Death, Other)
  Sender: FDA-Public Use
  Company Number: 2005148238

PATIENT
  Sex: Male

DRUGS (3)
  1. ZOLOFT [Suspect]
     Indication: ILL-DEFINED DISORDER
     Dosage: 200 MG
  2. GEODON [Suspect]
     Indication: ILL-DEFINED DISORDER
     Dosage: 160 MG
  3. ANAFRANIL [Suspect]
     Indication: ILL-DEFINED DISORDER
     Dosage: 250 MG

REACTIONS (2)
  - CARDIAC DISORDER [None]
  - MULTIPLE DRUG OVERDOSE [None]
